FAERS Safety Report 13151345 (Version 1)
Quarter: 2017Q1

REPORT INFORMATION
  Report Type: Spontaneous
  Country: US (occurrence: US)
  Receive Date: 20170125
  Receipt Date: 20170125
  Transmission Date: 20170428
  Serious: No
  Sender: FDA-Public Use
  Company Number: None

PATIENT
  Age: 75 Year
  Sex: Female
  Weight: 62.14 kg

DRUGS (1)
  1. AMLODIPINE BESYLATE 5MG TAB [Suspect]
     Active Substance: AMLODIPINE BESYLATE
     Indication: BLOOD PRESSURE MEASUREMENT
     Dosage: ?          QUANTITY:G (PUITS, OF I TEASPOON,;?
     Route: 048
     Dates: start: 20161227, end: 20161229

REACTIONS (12)
  - Dizziness [None]
  - Vision blurred [None]
  - Pain in extremity [None]
  - Diarrhoea [None]
  - Palpitations [None]
  - Flushing [None]
  - Abdominal pain upper [None]
  - Muscle twitching [None]
  - Nausea [None]
  - Tinnitus [None]
  - Bladder disorder [None]
  - Tremor [None]

NARRATIVE: CASE EVENT DATE: 20161227
